FAERS Safety Report 11031937 (Version 3)
Quarter: 2019Q4

REPORT INFORMATION
  Report Type: Spontaneous
  Country: US (occurrence: US)
  Receive Date: 20150415
  Receipt Date: 20191107
  Transmission Date: 20200122
  Serious: Yes (Other)
  Sender: FDA-Public Use
  Company Number: US-PFIZER INC-2015127408

PATIENT
  Age: 59 Year
  Sex: Male

DRUGS (5)
  1. VIAGRA [Suspect]
     Active Substance: SILDENAFIL CITRATE
     Dosage: 100 MG, TWICE A MONTH
     Route: 048
     Dates: start: 20110519, end: 20140213
  2. CIALIS [Suspect]
     Active Substance: TADALAFIL
     Indication: ERECTILE DYSFUNCTION
     Dosage: 100 MG, UNK (TWICE A MONTH)
     Route: 048
  3. VIAGRA [Suspect]
     Active Substance: SILDENAFIL CITRATE
     Dosage: 100 MG, TWICE A MONTH
     Route: 048
     Dates: start: 20091120, end: 20140529
  4. VIAGRA [Suspect]
     Active Substance: SILDENAFIL CITRATE
     Indication: ERECTILE DYSFUNCTION
     Dosage: UNK
     Route: 048
     Dates: start: 200904, end: 201109
  5. VIAGRA [Suspect]
     Active Substance: SILDENAFIL CITRATE
     Dosage: 50 MG, TWICE A MONTH
     Route: 048
     Dates: start: 20110519, end: 20140213

REACTIONS (2)
  - Malignant melanoma [Unknown]
  - Nodular melanoma [Unknown]

NARRATIVE: CASE EVENT DATE: 20110817
